FAERS Safety Report 13884906 (Version 1)
Quarter: 2017Q3

REPORT INFORMATION
  Report Type: Spontaneous
  Country: US (occurrence: US)
  Receive Date: 20170821
  Receipt Date: 20170821
  Transmission Date: 20171127
  Serious: No
  Sender: FDA-Public Use
  Company Number: US-TEVA-772931ACC

PATIENT
  Sex: Female

DRUGS (2)
  1. FAMCICLOVIR. [Suspect]
     Active Substance: FAMCICLOVIR
     Indication: HERPES SIMPLEX
     Route: 065
  2. FAMCICLOVIR. [Suspect]
     Active Substance: FAMCICLOVIR
     Indication: TRIGEMINAL NEURALGIA

REACTIONS (8)
  - Drug ineffective [Unknown]
  - Neuralgia [Unknown]
  - Adverse event [Unknown]
  - Pain [Unknown]
  - Condition aggravated [Unknown]
  - Product substitution issue [Unknown]
  - Depression [Unknown]
  - Depressed mood [Unknown]
